FAERS Safety Report 10378034 (Version 1)
Quarter: 2014Q3

REPORT INFORMATION
  Report Type: Spontaneous
  Country: IT (occurrence: None)
  Receive Date: 20140807
  Receipt Date: 20140807
  Transmission Date: 20150326
  Serious: Yes (Hospitalization)
  Sender: FDA-Public Use
  Company Number: AUR-APL-2014-08334

PATIENT
  Age: 73 Year
  Sex: Male

DRUGS (5)
  1. AMOXICILLIN 1G (AMOXICILLIN) UNKNOWN, 1G [Suspect]
     Active Substance: AMOXICILLIN
     Indication: INFECTION
     Dosage: TOTAL
     Route: 048
     Dates: start: 20140120, end: 20140120
  2. CRESTOR [Concomitant]
     Active Substance: ROSUVASTATIN CALCIUM
  3. SEROPRAM [Concomitant]
     Active Substance: CITALOPRAM HYDROBROMIDE
  4. FOSTER [Concomitant]
     Active Substance: BECLOMETHASONE\FORMOTEROL
  5. CARDIOASPIRIN [Concomitant]
     Active Substance: ASPIRIN

REACTIONS (1)
  - Anaphylactic shock [None]

NARRATIVE: CASE EVENT DATE: 20140120
